FAERS Safety Report 8266349-X (Version None)
Quarter: 2012Q2

REPORT INFORMATION
  Report Type: 
  Country: None (occurrence: None)
  Receive Date: 20120406
  Receipt Date: 20120402
  Transmission Date: 20120825
  Serious: Yes (Other)
  Sender: FDA-Public Use
  Company Number: CHPA2012US006145

PATIENT
  Age: 74 Year
  Sex: Female

DRUGS (2)
  1. PREVACID 24 HR [Suspect]
     Indication: GASTROOESOPHAGEAL REFLUX DISEASE
     Dosage: 15MG DAILY
     Route: 048
     Dates: start: 20120101
  2. TAMOXIFEN CITRATE [Concomitant]
     Indication: BREAST CANCER

REACTIONS (4)
  - OFF LABEL USE [None]
  - EYE INFECTION [None]
  - THERAPEUTIC RESPONSE UNEXPECTED [None]
  - INCORRECT DRUG ADMINISTRATION DURATION [None]
